FAERS Safety Report 18621421 (Version 3)
Quarter: 2021Q1

REPORT INFORMATION
  Report Type: Report from Study
  Country: US (occurrence: IE)
  Receive Date: 20201215
  Receipt Date: 20210216
  Transmission Date: 20210419
  Serious: Yes (Other)
  Sender: FDA-Public Use
  Company Number: IE-SHIRE-IE202022782

PATIENT
  Age: 58 Year
  Sex: Male

DRUGS (7)
  1. HUMAN IMMUNOGLOBULIN; HYALURONIDASE [Suspect]
     Active Substance: HUMAN IMMUNOGLOBULIN G\HYALURONIDASE RECOMBINANT HUMAN
     Dosage: 15 GRAM, Q4WEEKS
     Route: 058
     Dates: start: 20200629
  2. HUMAN IMMUNOGLOBULIN; HYALURONIDASE [Suspect]
     Active Substance: HUMAN IMMUNOGLOBULIN G\HYALURONIDASE RECOMBINANT HUMAN
     Dosage: 15 GRAM, Q4WEEKS
     Route: 058
     Dates: start: 20200811
  3. HUMAN IMMUNOGLOBULIN; HYALURONIDASE [Suspect]
     Active Substance: HUMAN IMMUNOGLOBULIN G\HYALURONIDASE RECOMBINANT HUMAN
     Indication: PLASMA CELL MYELOMA
     Dosage: 5 GRAM
     Route: 058
     Dates: start: 20200629
  4. HUMAN IMMUNOGLOBULIN; HYALURONIDASE [Suspect]
     Active Substance: HUMAN IMMUNOGLOBULIN G\HYALURONIDASE RECOMBINANT HUMAN
     Dosage: 15 GRAM, Q4WEEKS
     Route: 058
     Dates: start: 20200629
  5. HUMAN IMMUNOGLOBULIN; HYALURONIDASE [Suspect]
     Active Substance: HUMAN IMMUNOGLOBULIN G\HYALURONIDASE RECOMBINANT HUMAN
     Dosage: 15 GRAM, Q4WEEKS
     Route: 058
     Dates: start: 20200629
  6. HUMAN IMMUNOGLOBULIN; HYALURONIDASE [Suspect]
     Active Substance: HUMAN IMMUNOGLOBULIN G\HYALURONIDASE RECOMBINANT HUMAN
     Dosage: 10 GRAM
     Route: 058
     Dates: start: 20200713
  7. HUMAN IMMUNOGLOBULIN; HYALURONIDASE [Suspect]
     Active Substance: HUMAN IMMUNOGLOBULIN G\HYALURONIDASE RECOMBINANT HUMAN
     Dosage: 15 GRAM, Q4WEEKS
     Route: 058
     Dates: start: 20200811

REACTIONS (7)
  - Infusion site swelling [Recovering/Resolving]
  - Inappropriate schedule of product administration [Recovered/Resolved]
  - Product dispensing error [Recovered/Resolved]
  - Infusion site haemorrhage [Recovered/Resolved]
  - Product use in unapproved indication [Unknown]
  - Gastric mucosal lesion [Recovered/Resolved]
  - Infusion site erythema [Recovering/Resolving]

NARRATIVE: CASE EVENT DATE: 20200713
